FAERS Safety Report 8474908-4 (Version None)
Quarter: 2012Q2

REPORT INFORMATION
  Report Type: 
  Country: None (occurrence: None)
  Receive Date: 20120628
  Receipt Date: 20120620
  Transmission Date: 20120825
  Serious: Yes (Hospitalization)
  Sender: FDA-Public Use
  Company Number: US-UCBSA-060184

PATIENT
  Age: 47 Year
  Sex: Female
  Weight: 117.02 kg

DRUGS (6)
  1. CIMZIA [Suspect]
     Indication: CROHN'S DISEASE
     Dosage: AT WEEK 0,2,4
     Route: 058
     Dates: start: 20120417, end: 20120101
  2. FOLIC ACID [Concomitant]
     Dosage: NR
     Route: 048
  3. CIMZIA [Suspect]
     Route: 058
     Dates: start: 20120101
  4. VITAMIN D [Concomitant]
     Dosage: NR
     Route: 048
  5. OMEPRAZOLE [Concomitant]
     Indication: GASTROOESOPHAGEAL REFLUX DISEASE
     Dosage: 40 MG PRN
     Route: 048
  6. M.V.I. [Concomitant]
     Dosage: NR
     Route: 048

REACTIONS (2)
  - ABDOMINAL PAIN [None]
  - PANCREATITIS [None]
